FAERS Safety Report 4269859-5 (Version None)
Quarter: 2004Q1

REPORT INFORMATION
  Report Type: 
  Country: None (occurrence: None)
  Receive Date: 20040112
  Receipt Date: 20040112
  Transmission Date: 20041129
  Serious: Yes (Hospitalization)
  Sender: FDA-Public Use
  Company Number: None

PATIENT
  Age: 64 Year
  Sex: Male

DRUGS (7)
  1. FOSINOPRIL SODIUM [Suspect]
     Indication: HYPERTENSION
     Dosage: 40 MG QD
     Dates: start: 20000601
  2. ATENOLOL [Suspect]
     Indication: HYPERTENSION
     Dosage: 50 MG QD
     Dates: start: 20000901
  3. PERCOCET [Concomitant]
  4. OXYCONTIN [Concomitant]
  5. LEFLUNOMIDE [Concomitant]
  6. LEVOFLOXACIN [Concomitant]
  7. ETANERCEPT [Concomitant]

REACTIONS (1)
  - HYPOTENSION [None]
